FAERS Safety Report 10817984 (Version 1)
Quarter: 2015Q1

REPORT INFORMATION
  Report Type: Report from Study
  Country: US (occurrence: US)
  Receive Date: 20150218
  Receipt Date: 20150218
  Transmission Date: 20150721
  Serious: Yes (Hospitalization)
  Sender: FDA-Public Use
  Company Number: US-GLAXOSMITHKLINE-US2015GSK020021

PATIENT
  Sex: Female
  Weight: 68.27 kg

DRUGS (8)
  1. DYAZIDE [Suspect]
     Active Substance: HYDROCHLOROTHIAZIDE\TRIAMTERENE
     Indication: HYPERTENSION
     Dosage: 1 DF, QD
     Route: 048
     Dates: start: 20140430, end: 20140502
  2. LISINOPRIL. [Concomitant]
     Active Substance: LISINOPRIL
     Dosage: UNK
     Dates: start: 20030101
  3. COREG [Concomitant]
     Active Substance: CARVEDILOL
     Dosage: UNK
     Dates: start: 20050101
  4. BLINDED TRIAL MEDICATION [Suspect]
     Active Substance: INVESTIGATIONAL PRODUCT
     Indication: SARCOPENIA
     Dosage: UNK
     Dates: start: 20140428
  5. PRILOSEC [Concomitant]
     Active Substance: OMEPRAZOLE MAGNESIUM
     Dosage: UNK
     Dates: start: 20090101
  6. VESICARE [Concomitant]
     Active Substance: SOLIFENACIN SUCCINATE
     Dosage: UNK
     Dates: start: 20100101
  7. ALIGN [Concomitant]
     Active Substance: BIFIDOBACTERIUM LONGUM SUBSP. INFANTIS
     Dosage: UNK
     Dates: start: 20131101
  8. ASPIRIN. [Concomitant]
     Active Substance: ASPIRIN
     Dosage: UNK
     Dates: start: 20050101

REACTIONS (7)
  - Carbon dioxide decreased [None]
  - Anion gap increased [None]
  - Hyponatraemia [Recovered/Resolved]
  - Myoglobin blood increased [None]
  - Blood glucose increased [None]
  - Blood urea increased [None]
  - Blood chloride decreased [None]

NARRATIVE: CASE EVENT DATE: 20140503
